FAERS Safety Report 14367180 (Version 1)
Quarter: 2018Q1

REPORT INFORMATION
  Report Type: Spontaneous
  Country: US (occurrence: US)
  Receive Date: 20180109
  Receipt Date: 20180109
  Transmission Date: 20180509
  Serious: No
  Sender: FDA-Public Use
  Company Number: US-JNJFOC-20171120929

PATIENT
  Age: 82 Year
  Sex: Female
  Weight: 70.31 kg

DRUGS (4)
  1. INFLUENZA VACCINE [Concomitant]
     Active Substance: INFLUENZA VIRUS VACCINE
     Indication: IMMUNISATION
     Route: 065
  2. NOVOCAINE [Concomitant]
     Active Substance: PROCAINE
     Indication: DENTAL CARE
     Route: 065
  3. MOTRIN IB [Suspect]
     Active Substance: IBUPROFEN
     Route: 065
  4. MOTRIN IB [Suspect]
     Active Substance: IBUPROFEN
     Indication: PAIN
     Dosage: 1 TABLET EVERY 4 HOURS
     Route: 065
     Dates: start: 20171115, end: 20171115

REACTIONS (2)
  - Balance disorder [Not Recovered/Not Resolved]
  - Fall [Not Recovered/Not Resolved]

NARRATIVE: CASE EVENT DATE: 20171115
